FAERS Safety Report 17540041 (Version 9)
Quarter: 2021Q1

REPORT INFORMATION
  Report Type: Spontaneous
  Country: US (occurrence: US)
  Receive Date: 20200313
  Receipt Date: 20210107
  Transmission Date: 20210419
  Serious: Yes (Other)
  Sender: FDA-Public Use
  Company Number: US-SA-2020SA065490

PATIENT

DRUGS (2)
  1. ALDURAZYME [Suspect]
     Active Substance: LARONIDASE
     Dosage: 23.2 MG, QW
     Route: 041
     Dates: start: 20200221
  2. ALDURAZYME [Suspect]
     Active Substance: LARONIDASE
     Indication: MUCOPOLYSACCHARIDOSIS I
     Dosage: 23.2 MG, QW
     Route: 041
     Dates: start: 20190219

REACTIONS (12)
  - Cough [Unknown]
  - Poor venous access [Unknown]
  - Suicidal ideation [Unknown]
  - Respiratory symptom [Unknown]
  - Catheter site related reaction [Unknown]
  - Panic reaction [Unknown]
  - Product dose omission issue [Unknown]
  - Catheter site pain [Unknown]
  - Stress [Unknown]
  - Feeling abnormal [Unknown]
  - Dehydration [Unknown]
  - Surgery [Unknown]
